FAERS Safety Report 7617212-6 (Version None)
Quarter: 2011Q3

REPORT INFORMATION
  Report Type: 
  Country: None (occurrence: None)
  Receive Date: 20110718
  Receipt Date: 20110714
  Transmission Date: 20111222
  Serious: Yes (Other)
  Sender: FDA-Public Use
  Company Number: US-BAYER-2011-061756

PATIENT
  Sex: Female

DRUGS (2)
  1. YASMIN [Suspect]
     Dosage: UNK
     Dates: start: 20030101
  2. YAZ [Suspect]
     Dosage: UNK
     Dates: start: 20060101, end: 20070101

REACTIONS (9)
  - POST CHOLECYSTECTOMY SYNDROME [None]
  - INJURY [None]
  - FEAR [None]
  - GALLBLADDER DISORDER [None]
  - ANXIETY [None]
  - PSYCHIATRIC SYMPTOM [None]
  - PAIN [None]
  - GASTROINTESTINAL DISORDER [None]
  - ANHEDONIA [None]
